FAERS Safety Report 21704386 (Version 1)
Quarter: 2022Q4

REPORT INFORMATION
  Report Type: Report from Study
  Country: US (occurrence: US)
  Receive Date: 20221209
  Receipt Date: 20221209
  Transmission Date: 20230112
  Serious: No
  Sender: FDA-Public Use
  Company Number: US-002147023-NVSC2022US286197

PATIENT
  Sex: Female

DRUGS (2)
  1. GLEEVEC [Suspect]
     Active Substance: IMATINIB MESYLATE
     Indication: Chronic myeloid leukaemia (in remission)
     Dosage: 400 MG, QD
     Route: 048
     Dates: start: 20211005
  2. GLEEVEC [Suspect]
     Active Substance: IMATINIB MESYLATE
     Dosage: 400 MG (100 MG TABLET, 2 TABLETS IN THE MORNING AND 2 TABLETS IN THE EVENING)
     Route: 065

REACTIONS (1)
  - Abdominal pain upper [Unknown]
